FAERS Safety Report 6057442-0 (Version None)
Quarter: 2009Q1

REPORT INFORMATION
  Report Type: 
  Country: None (occurrence: None)
  Receive Date: 20090129
  Receipt Date: 20090116
  Transmission Date: 20090719
  Serious: Yes (Death)
  Sender: FDA-Public Use
  Company Number: GXKR2009GB00881

PATIENT
  Sex: Female
  Weight: 75 kg

DRUGS (7)
  1. ACETYLSALICYLIC ACID SRT [Suspect]
     Indication: PLATELET AGGREGATION
     Dosage: 75 MG, QD
     Route: 048
  2. DICLOFENAC [Suspect]
     Indication: PAIN
     Dosage: UNK
     Route: 048
     Dates: start: 20081107
  3. ARTHROTEC [Suspect]
     Indication: OSTEOARTHRITIS
     Dosage: 75 MG, BID
     Route: 048
     Dates: start: 20010301, end: 20081217
  4. ADCAL-D3 [Concomitant]
     Route: 065
  5. DOMPERIDONE [Concomitant]
     Indication: NAUSEA
     Route: 065
  6. FUROSEMIDE [Concomitant]
     Route: 065
  7. ACETAMINOPHEN [Concomitant]
     Route: 065

REACTIONS (4)
  - GASTROINTESTINAL HAEMORRHAGE [None]
  - HAEMATEMESIS [None]
  - MELAENA [None]
  - RENAL FAILURE ACUTE [None]
